FAERS Safety Report 12324873 (Version 1)
Quarter: 2016Q2

REPORT INFORMATION
  Report Type: Report from Study
  Country: US (occurrence: US)
  Receive Date: 20160502
  Receipt Date: 20160502
  Transmission Date: 20160815
  Serious: Yes (Hospitalization, Other)
  Sender: FDA-Public Use
  Company Number: US-ABBVIE-16K-163-1612949-00

PATIENT
  Age: 54 Year
  Sex: Male
  Weight: 123.94 kg

DRUGS (2)
  1. HUMIRA [Suspect]
     Active Substance: ADALIMUMAB
     Indication: POLYMYOSITIS
  2. HUMIRA [Suspect]
     Active Substance: ADALIMUMAB
     Indication: RHEUMATOID ARTHRITIS
     Route: 058
     Dates: start: 20160324, end: 20160324

REACTIONS (2)
  - Coronary artery occlusion [Unknown]
  - Myocardial infarction [Recovering/Resolving]

NARRATIVE: CASE EVENT DATE: 2016
